FAERS Safety Report 5341520-5 (Version None)
Quarter: 2007Q2

REPORT INFORMATION
  Report Type: 
  Country: None (occurrence: None)
  Receive Date: 20070529
  Receipt Date: 20070529
  Transmission Date: 20071010
  Serious: Yes (Hospitalization)
  Sender: FDA-Public Use
  Company Number: None

PATIENT
  Age: 51 Year
  Sex: Female

DRUGS (8)
  1. DEPAKOTE [Suspect]
     Dosage: 2000MG PO
     Route: 048
  2. SYNTHROID [Concomitant]
  3. ENABLEX [Concomitant]
  4. MIRAPEX [Concomitant]
  5. NEURONTIN [Concomitant]
  6. AVINZA [Concomitant]
  7. VALIUM [Concomitant]
  8. MIRALAX [Concomitant]

REACTIONS (7)
  - DRUG LEVEL INCREASED [None]
  - HEART RATE INCREASED [None]
  - LETHARGY [None]
  - LOSS OF CONSCIOUSNESS [None]
  - MENTAL STATUS CHANGES [None]
  - PYREXIA [None]
  - TREMOR [None]
